FAERS Safety Report 26082209 (Version 1)
Quarter: 2025Q4

REPORT INFORMATION
  Report Type: Spontaneous
  Country: US (occurrence: US)
  Receive Date: 20251124
  Receipt Date: 20251124
  Transmission Date: 20260118
  Serious: No
  Sender: BAYER HEALTHCARE LLC
  Company Number: US-BAYER-2025A154756

PATIENT
  Age: 75 Year
  Sex: Male

DRUGS (2)
  1. MIRALAX [Suspect]
     Active Substance: POLYETHYLENE GLYCOL 3350
     Indication: Gastrointestinal disorder
     Dosage: 1 8.3 OZ BOTTLE OF MIRALAX IN 56 OZ OF GATORADE
     Route: 048
     Dates: start: 20251120
  2. MIRALAX [Suspect]
     Active Substance: POLYETHYLENE GLYCOL 3350
     Indication: Colonoscopy

REACTIONS (1)
  - Product prescribing issue [Recovered/Resolved]

NARRATIVE: CASE EVENT DATE: 20250101
